FAERS Safety Report 5780403-3 (Version None)
Quarter: 2008Q2

REPORT INFORMATION
  Report Type: 
  Country: None (occurrence: None)
  Receive Date: 20080620
  Receipt Date: 20080611
  Transmission Date: 20081010
  Serious: Yes (Hospitalization)
  Sender: FDA-Public Use
  Company Number: US-JNJFOC-20080603201

PATIENT
  Sex: Male

DRUGS (12)
  1. DORIBAX [Suspect]
     Indication: METHICILLIN-RESISTANT STAPHYLOCOCCAL AUREUS TEST
     Route: 041
  2. DORIBAX [Suspect]
     Indication: LUNG INFECTION PSEUDOMONAL
     Route: 041
  3. DORIBAX [Suspect]
     Indication: PNEUMONIA KLEBSIELLA
     Route: 041
  4. VANCOMYCIN [Concomitant]
     Indication: INFECTION
  5. ZOSYN [Concomitant]
     Indication: INFECTION
  6. VERSED [Concomitant]
     Indication: SEDATION
  7. PROTONIX [Concomitant]
     Indication: GASTROINTESTINAL DISORDER
  8. NYSTATIN [Concomitant]
     Indication: CANDIDIASIS
  9. REGLAN [Concomitant]
     Indication: IMPAIRED GASTRIC EMPTYING
  10. LOVENOX [Concomitant]
     Indication: THROMBOSIS PROPHYLAXIS
  11. ALBUTEROL SULFATE AUTOHALER [Concomitant]
     Indication: THROMBOSIS PROPHYLAXIS
  12. MORPHINE [Concomitant]
     Indication: AGITATION

REACTIONS (1)
  - BLOOD CREATININE INCREASED [None]
